FAERS Safety Report 17140774 (Version 4)
Quarter: 2021Q1

REPORT INFORMATION
  Report Type: Spontaneous
  Country: US (occurrence: US)
  Receive Date: 20191211
  Receipt Date: 20210323
  Transmission Date: 20210419
  Serious: Yes (Other)
  Sender: FDA-Public Use
  Company Number: US-GILEAD-2019-0441954

PATIENT
  Sex: Male

DRUGS (4)
  1. BIKTARVY [Concomitant]
     Active Substance: BICTEGRAVIR SODIUM\EMTRICITABINE\TENOFOVIR ALAFENAMIDE FUMARATE
  2. ATRIPLA [Suspect]
     Active Substance: EFAVIRENZ\EMTRICITABINE\TENOFOVIR DISOPROXIL FUMARATE
     Indication: HIV INFECTION
     Dosage: UNK
     Route: 048
     Dates: start: 2009, end: 2016
  3. ATRIPLA [Suspect]
     Active Substance: EFAVIRENZ\EMTRICITABINE\TENOFOVIR DISOPROXIL FUMARATE
     Dosage: UNK
     Route: 048
     Dates: start: 2010, end: 2016
  4. TRUVADA [Suspect]
     Active Substance: EMTRICITABINE\TENOFOVIR DISOPROXIL FUMARATE
     Indication: HIV INFECTION
     Dosage: UNK
     Route: 048
     Dates: start: 2009, end: 2016

REACTIONS (14)
  - Bone loss [Unknown]
  - Anxiety [Unknown]
  - Anhedonia [Unknown]
  - Tooth extraction [Unknown]
  - Tooth fracture [Recovered/Resolved]
  - Pain [Unknown]
  - Tooth loss [Unknown]
  - Bone density decreased [Not Recovered/Not Resolved]
  - Tooth fracture [Recovered/Resolved]
  - Economic problem [Unknown]
  - Facial paralysis [Recovered/Resolved]
  - Renal failure [Recovered/Resolved]
  - Emotional distress [Unknown]
  - Teeth brittle [Recovered/Resolved]

NARRATIVE: CASE EVENT DATE: 2010
